FAERS Safety Report 25050088 (Version 1)
Quarter: 2025Q1

REPORT INFORMATION
  Report Type: Spontaneous
  Country: IT (occurrence: IT)
  Receive Date: 20250307
  Receipt Date: 20250307
  Transmission Date: 20250409
  Serious: Yes (Other)
  Sender: ACCORD
  Company Number: None

PATIENT
  Age: 73 Year
  Sex: Female
  Weight: 105 kg

DRUGS (2)
  1. PACLITAXEL [Suspect]
     Active Substance: PACLITAXEL
     Indication: HER2 positive breast cancer
     Dates: start: 20250130, end: 20250130
  2. TRASTUZUMAB [Concomitant]
     Active Substance: TRASTUZUMAB
     Indication: HER2 positive breast cancer
     Dates: start: 20250130, end: 20250130

REACTIONS (3)
  - Laryngospasm [Recovered/Resolved]
  - Dyspnoea [Recovered/Resolved]
  - Chest discomfort [Recovered/Resolved]

NARRATIVE: CASE EVENT DATE: 20250130
